FAERS Safety Report 19101699 (Version 1)
Quarter: 2021Q2

REPORT INFORMATION
  Report Type: Other
  Country: US (occurrence: US)
  Receive Date: 20210407
  Receipt Date: 20210407
  Transmission Date: 20210717
  Serious: Yes (Hospitalization)
  Sender: FDA-Public Use
  Company Number: US-CHEMI SPA-2108991

PATIENT
  Age: 73 Year
  Sex: Male

DRUGS (4)
  1. VENETOCLAX. [Concomitant]
     Active Substance: VENETOCLAX
  2. INOTUZUMAB OZOGAMICIN [Concomitant]
     Active Substance: INOTUZUMAB OZOGAMICIN
  3. DECITABINE. [Suspect]
     Active Substance: DECITABINE
     Indication: CHEMOTHERAPY
  4. BLINATUMOMAB [Concomitant]
     Active Substance: BLINATUMOMAB

REACTIONS (2)
  - Myelosuppression [Unknown]
  - Infection susceptibility increased [Unknown]
